FAERS Safety Report 24205791 (Version 1)
Quarter: 2024Q3

REPORT INFORMATION
  Report Type: Spontaneous
  Country: TR (occurrence: TR)
  Receive Date: 20240813
  Receipt Date: 20240813
  Transmission Date: 20241016
  Serious: Yes (Other)
  Sender: NOVO NORDISK
  Company Number: TR-NOVOPROD-1266511

PATIENT
  Age: 19 Year
  Sex: Female

DRUGS (4)
  1. LEVEMIR [Suspect]
     Active Substance: INSULIN DETEMIR
     Indication: Gestational diabetes
     Dosage: 0.6 IU/KG/DAY
  2. LEVEMIR [Suspect]
     Active Substance: INSULIN DETEMIR
     Dosage: 1.2 IU/KG/DAY
  3. INSULIN ASPART [Suspect]
     Active Substance: INSULIN ASPART
     Indication: Gestational diabetes
     Dosage: 0.6 IU/KG/DAY
  4. INSULIN ASPART [Suspect]
     Active Substance: INSULIN ASPART
     Dosage: 1.2 IU/KG/DAY

REACTIONS (5)
  - Type 1 diabetes mellitus [Unknown]
  - Breast abscess [Unknown]
  - Breast swelling [Unknown]
  - Erythema [Unknown]
  - Maternal exposure during pregnancy [Recovered/Resolved]
